FAERS Safety Report 11379380 (Version 1)
Quarter: 2015Q3

REPORT INFORMATION
  Report Type: Spontaneous
  Country: DE (occurrence: DE)
  Receive Date: 20150813
  Receipt Date: 20150813
  Transmission Date: 20151125
  Serious: Yes (Death, Other)
  Sender: FDA-Public Use
  Company Number: PHHY2015DE095487

PATIENT
  Sex: Female

DRUGS (1)
  1. OCTREOTIDE. [Suspect]
     Active Substance: OCTREOTIDE
     Indication: NEUROENDOCRINE TUMOUR
     Route: 065

REACTIONS (5)
  - Second primary malignancy [Fatal]
  - Malignant neoplasm progression [Fatal]
  - Acute myeloid leukaemia [Fatal]
  - Drug ineffective [Unknown]
  - Myelodysplastic syndrome [Fatal]
